FAERS Safety Report 12800988 (Version 5)
Quarter: 2017Q1

REPORT INFORMATION
  Report Type: Spontaneous
  Country: CA (occurrence: CA)
  Receive Date: 20161003
  Receipt Date: 20170320
  Transmission Date: 20170428
  Serious: Yes (Other)
  Sender: FDA-Public Use
  Company Number: CA-ROCHE-1836959

PATIENT
  Age: 21 Year
  Sex: Female

DRUGS (9)
  1. XOLAIR [Suspect]
     Active Substance: OMALIZUMAB
     Route: 058
     Dates: start: 20170118
  2. XOLAIR [Suspect]
     Active Substance: OMALIZUMAB
     Route: 058
     Dates: start: 20170215
  3. XOLAIR [Suspect]
     Active Substance: OMALIZUMAB
     Indication: ASTHMA
     Route: 058
     Dates: start: 20140729
  4. XOLAIR [Suspect]
     Active Substance: OMALIZUMAB
     Dosage: UNK
     Route: 058
     Dates: start: 20160927
  5. XOLAIR [Suspect]
     Active Substance: OMALIZUMAB
     Dosage: UNK
     Route: 058
     Dates: start: 20161025
  6. XOLAIR [Suspect]
     Active Substance: OMALIZUMAB
     Route: 058
     Dates: start: 20161207
  7. XOLAIR [Suspect]
     Active Substance: OMALIZUMAB
     Dosage: UNK
     Route: 058
     Dates: start: 20160913
  8. XOLAIR [Suspect]
     Active Substance: OMALIZUMAB
     Route: 058
     Dates: start: 20170104
  9. SINGULAIR [Concomitant]
     Active Substance: MONTELUKAST SODIUM
     Indication: PRODUCT USED FOR UNKNOWN INDICATION
     Route: 065

REACTIONS (19)
  - Dyspnoea [Recovering/Resolving]
  - Weight increased [Unknown]
  - Body temperature increased [Unknown]
  - Asthma [Unknown]
  - Fear [Unknown]
  - Tension [Unknown]
  - Lower respiratory tract infection [Unknown]
  - Blood pressure increased [Unknown]
  - Rhinitis [Unknown]
  - Respiratory disorder [Unknown]
  - Influenza like illness [Unknown]
  - Haemorrhage [Unknown]
  - Tachycardia [Unknown]
  - Malaise [Unknown]
  - Nasopharyngitis [Unknown]
  - Productive cough [Unknown]
  - Dyspnoea exertional [Unknown]
  - Chest pain [Unknown]
  - Wheezing [Unknown]

NARRATIVE: CASE EVENT DATE: 20140923
